FAERS Safety Report 4511237-5 (Version None)
Quarter: 2004Q4

REPORT INFORMATION
  Report Type: 
  Country: None (occurrence: None)
  Receive Date: 20041122
  Receipt Date: 20041122
  Transmission Date: 20050328
  Serious: Yes (Life-Threatening)
  Sender: FDA-Public Use
  Company Number: None

PATIENT
  Sex: Male
  Weight: 86.1834 kg

DRUGS (3)
  1. VIOXX [Suspect]
     Indication: ARTHRALGIA
     Dosage: DAILY
     Dates: start: 20010708, end: 20040930
  2. LIPITOR [Concomitant]
  3. CENTRUM VITAMIN [Concomitant]

REACTIONS (1)
  - MYOCARDIAL INFARCTION [None]
